FAERS Safety Report 9259241 (Version 5)
Quarter: 2024Q1

REPORT INFORMATION
  Report Type: Spontaneous
  Country: FR (occurrence: None)
  Receive Date: 20130426
  Receipt Date: 20240305
  Transmission Date: 20240410
  Serious: Yes (Death, Life-Threatening, Hospitalization, Other)
  Sender: FDA-Public Use
  Company Number: 2013SE28237

PATIENT
  Age: 39 Year
  Sex: Female
  Weight: 79 kg

DRUGS (23)
  1. ESOMEPRAZOLE [Suspect]
     Active Substance: ESOMEPRAZOLE
     Indication: Gastrooesophageal reflux disease
     Route: 048
     Dates: start: 20130318, end: 20130401
  2. NOXAFIL [Suspect]
     Active Substance: POSACONAZOLE
     Indication: Gastrointestinal candidiasis
     Route: 048
     Dates: start: 20130314, end: 20130328
  3. SOLIRIS [Suspect]
     Active Substance: ECULIZUMAB
     Indication: Haemolytic uraemic syndrome
     Dosage: MOST RECENT DOSE ON 05/APR/2013
     Route: 041
     Dates: start: 20130327
  4. GANCICLOVIR [Suspect]
     Active Substance: GANCICLOVIR
     Indication: Cytomegalovirus infection
     Route: 042
     Dates: start: 20130330
  5. CELLCEPT [Suspect]
     Active Substance: MYCOPHENOLATE MOFETIL
     Indication: Graft versus host disease
     Route: 042
     Dates: start: 20130320
  6. CANCIDAS [Suspect]
     Active Substance: CASPOFUNGIN ACETATE
     Indication: Gastrointestinal candidiasis
     Dates: start: 20130328
  7. PIPERACILLIN SODIUM\TAZOBACTAM SODIUM [Suspect]
     Active Substance: PIPERACILLIN SODIUM\TAZOBACTAM SODIUM
     Indication: Cystitis escherichia
     Route: 042
     Dates: start: 20130212, end: 20130403
  8. FOSCAVIR [Suspect]
     Active Substance: FOSCARNET SODIUM
     Indication: Cytomegalovirus infection
     Dates: start: 20130319, end: 20130329
  9. VALACYCLOVIR HYDROCHLORIDE [Concomitant]
     Active Substance: VALACYCLOVIR HYDROCHLORIDE
     Route: 048
  10. CYCLOSPORINE [Concomitant]
     Active Substance: CYCLOSPORINE
     Dates: end: 20130320
  11. SOLU-MEDROL [Concomitant]
     Active Substance: METHYLPREDNISOLONE SODIUM SUCCINATE
     Dosage: 80 MG IN THE MORNING AND 40 MG IN THE EVENING
     Route: 048
  12. URSODIOL [Concomitant]
     Active Substance: URSODIOL
  13. DEFIBROTIDE [Concomitant]
     Active Substance: DEFIBROTIDE (BOVINE)
  14. FUROSEMIDE [Concomitant]
     Active Substance: FUROSEMIDE
  15. SPASFON [Concomitant]
  16. OMEPRAZOLE [Concomitant]
     Active Substance: OMEPRAZOLE
  17. SEROPRAM [Concomitant]
  18. HALDOL [Concomitant]
     Active Substance: HALOPERIDOL
  19. ZOLPIDEM TARTRATE [Concomitant]
     Active Substance: ZOLPIDEM TARTRATE
  20. CALCIUM\CHOLECALCIFEROL [Concomitant]
     Active Substance: CALCIUM\CHOLECALCIFEROL
  21. TRIMEBUTINE [Concomitant]
     Active Substance: TRIMEBUTINE
  22. HEPARIN [Concomitant]
     Active Substance: HEPARIN SODIUM
  23. CHOLECALCIFEROL [Concomitant]
     Active Substance: CHOLECALCIFEROL

REACTIONS (13)
  - Bone marrow failure [Fatal]
  - Cerebral haemorrhage [Fatal]
  - Haemolytic uraemic syndrome [Unknown]
  - Venoocclusive disease [Unknown]
  - Graft versus host disease [Unknown]
  - Cytomegalovirus infection reactivation [Unknown]
  - Leukaemia recurrent [Unknown]
  - Sepsis [Unknown]
  - Bacterial pyelonephritis [Unknown]
  - Coagulopathy [Unknown]
  - Renal failure [Unknown]
  - Toxic epidermal necrolysis [Unknown]
  - Rash [Unknown]

NARRATIVE: CASE EVENT DATE: 20130328
